FAERS Safety Report 8912311 (Version 2)
Quarter: 2012Q4

REPORT INFORMATION
  Report Type: Report from Study
  Country: DE (occurrence: DE)
  Receive Date: 20121115
  Receipt Date: 20121116
  Transmission Date: 20130627
  Serious: Yes (Hospitalization)
  Sender: FDA-Public Use
  Company Number: DE-JNJFOC-20121105467

PATIENT
  Age: 16 Year
  Sex: Male
  Weight: 67.8 kg

DRUGS (3)
  1. REMICADE [Suspect]
     Indication: CROHN^S DISEASE
     Route: 042
     Dates: start: 20111109
  2. ZINC [Concomitant]
  3. OMEPRAZOLE [Concomitant]

REACTIONS (1)
  - Gastroenteritis yersinia [Recovered/Resolved]
